FAERS Safety Report 10142807 (Version 2)
Quarter: 2014Q2

REPORT INFORMATION
  Report Type: Spontaneous
  Country: GB (occurrence: None)
  Receive Date: 20140428
  Receipt Date: 20140514
  Transmission Date: 20141212
  Serious: Yes (Life-Threatening, Other)
  Sender: FDA-Public Use
  Company Number: AUR-APL-2014-04815

PATIENT
  Age: 23 Year
  Sex: Male
  Weight: 88.9 kg

DRUGS (5)
  1. OLANZAPINE [Suspect]
     Indication: SLEEP DISORDER
  2. CLONAZEPAM [Suspect]
     Indication: PRODUCT USED FOR UNKNOWN INDICATION
  3. PREGABALIN (PREGABALIN) [Suspect]
     Indication: ANXIETY DISORDER
     Route: 048
     Dates: start: 20131201
  4. PROPRANOLOL HYDROCHLORIDE (PROPRANOLOL HYDROCHLORIDE) [Suspect]
     Indication: PRODUCT USED FOR UNKNOWN INDICATION
  5. SERTRALINE (SERTRALINE) [Concomitant]

REACTIONS (11)
  - Fluid retention [None]
  - Amnesia [None]
  - Disturbance in attention [None]
  - Asthenia [None]
  - Paraesthesia [None]
  - Abdominal pain [None]
  - Depressed level of consciousness [None]
  - Dyspnoea [None]
  - Chest discomfort [None]
  - Photosensitivity reaction [None]
  - Quality of life decreased [None]
